FAERS Safety Report 10079787 (Version 3)
Quarter: 2014Q2

REPORT INFORMATION
  Report Type: Spontaneous
  Country: JP (occurrence: JP)
  Receive Date: 20140415
  Receipt Date: 20140428
  Transmission Date: 20141212
  Serious: Yes (Hospitalization)
  Sender: FDA-Public Use
  Company Number: JP-GLAXOSMITHKLINE-B0985218A

PATIENT
  Age: 35 Year
  Sex: Male

DRUGS (8)
  1. LAMICTAL [Suspect]
     Indication: BIPOLAR DISORDER
     Route: 048
     Dates: start: 2012
  2. LAMICTAL [Suspect]
     Indication: BIPOLAR DISORDER
     Route: 048
     Dates: end: 20140312
  3. LAMICTAL [Suspect]
     Indication: BIPOLAR DISORDER
     Route: 048
     Dates: start: 20140313, end: 20140316
  4. LAMICTAL [Suspect]
     Indication: BIPOLAR DISORDER
     Route: 048
     Dates: start: 20140317
  5. PAXIL [Suspect]
     Indication: PRODUCT USED FOR UNKNOWN INDICATION
     Route: 048
  6. LIMAS [Concomitant]
     Indication: BIPOLAR DISORDER
     Route: 048
     Dates: end: 20140312
  7. LIMAS [Concomitant]
     Indication: BIPOLAR DISORDER
     Route: 048
     Dates: start: 20140313
  8. SEROQUEL [Concomitant]
     Indication: BIPOLAR I DISORDER
     Route: 048
     Dates: start: 2014

REACTIONS (8)
  - Suicidal ideation [Recovering/Resolving]
  - Bipolar disorder [Unknown]
  - Depression [Recovering/Resolving]
  - Restlessness [Recovering/Resolving]
  - Restlessness [Recovering/Resolving]
  - Irritability [Recovering/Resolving]
  - Insomnia [Not Recovered/Not Resolved]
  - Mania [Unknown]
